FAERS Safety Report 6059604-5 (Version None)
Quarter: 2009Q1

REPORT INFORMATION
  Report Type: 
  Country: None (occurrence: None)
  Receive Date: 20090130
  Receipt Date: 20090119
  Transmission Date: 20090719
  Serious: Yes (Other)
  Sender: FDA-Public Use
  Company Number: US-ROCHE-442054

PATIENT
  Age: 62 Year
  Sex: Male

DRUGS (5)
  1. KLONOPIN [Suspect]
     Indication: PANIC DISORDER
     Dosage: DOSING REGIMEN UNKNOWN.
     Route: 065
     Dates: start: 20000101
  2. CLONAZEPAM [Suspect]
     Indication: PANIC DISORDER
     Dosage: DOSE: 0.5 MG TWO OR THREE TIMES
     Route: 065
     Dates: start: 20080101
  3. HYDROCODONE [Concomitant]
  4. TOPROL-XL [Concomitant]
     Dates: start: 20080101
  5. LIPITOR [Concomitant]

REACTIONS (2)
  - BLADDER NEOPLASM [None]
  - HAEMORRHAGE URINARY TRACT [None]
